FAERS Safety Report 13121552 (Version 1)
Quarter: 2017Q1

REPORT INFORMATION
  Report Type: Spontaneous
  Country: US (occurrence: US)
  Receive Date: 20170114
  Receipt Date: 20170114
  Transmission Date: 20170428
  Serious: No
  Sender: FDA-Public Use
  Company Number: None

PATIENT
  Age: 50 Year
  Sex: Female
  Weight: 69.75 kg

DRUGS (1)
  1. CAPZASIN HP ARTHRITIS PAIN RELIEF [Suspect]
     Active Substance: CAPSAICIN
     Indication: MUSCLE STRAIN
     Dosage: ?          QUANTITY:1 1/4 TSP?;?
     Route: 061
     Dates: start: 20170114, end: 20170114

REACTIONS (2)
  - Application site pain [None]
  - Application site vesicles [None]
